APPROVED DRUG PRODUCT: COUMADIN
Active Ingredient: WARFARIN SODIUM
Strength: 5MG/VIAL
Dosage Form/Route: INJECTABLE;INJECTION
Application: N009218 | Product #024
Applicant: BRISTOL MYERS SQUIBB PHARMA CO
Approved: Feb 7, 1995 | RLD: No | RS: No | Type: DISCN